FAERS Safety Report 13477259 (Version 1)
Quarter: 2017Q2

REPORT INFORMATION
  Report Type: Spontaneous
  Country: US (occurrence: US)
  Receive Date: 20170425
  Receipt Date: 20170425
  Transmission Date: 20170830
  Serious: No
  Sender: FDA-Public Use
  Company Number: None

PATIENT
  Age: 38 Year
  Sex: Female
  Weight: 85.05 kg

DRUGS (3)
  1. NEURONTIN [Suspect]
     Active Substance: GABAPENTIN
     Indication: NEURALGIA
     Dosage: QUANTITY:1 CAPSULE(S); AT BEDTIME?
     Route: 048
     Dates: start: 20170419, end: 20170423
  2. VSL #3 (PROBIOTIC) [Concomitant]
  3. MEDROL [Suspect]
     Active Substance: METHYLPREDNISOLONE
     Indication: CERVICAL RADICULOPATHY
     Dosage: ?          QUANTITY:6 TABLET(S);?
     Route: 048
     Dates: start: 20170420, end: 20170424

REACTIONS (5)
  - Rash erythematous [None]
  - Dyspepsia [None]
  - Abdominal distension [None]
  - Dyspnoea [None]
  - Throat tightness [None]

NARRATIVE: CASE EVENT DATE: 20170420
